FAERS Safety Report 5680397-5 (Version None)
Quarter: 2008Q1

REPORT INFORMATION
  Report Type: 
  Country: None (occurrence: None)
  Receive Date: 20080326
  Receipt Date: 20080319
  Transmission Date: 20080703
  Serious: Yes (Hospitalization, Other)
  Sender: FDA-Public Use
  Company Number: BE-AVENTIS-200812572GDDC

PATIENT
  Age: 47 Year
  Sex: Female

DRUGS (2)
  1. KETEK [Suspect]
     Route: 048
     Dates: start: 20071001, end: 20071001
  2. UNKNOWN DRUG [Concomitant]

REACTIONS (1)
  - HEPATITIS [None]
